FAERS Safety Report 5623429-2 (Version None)
Quarter: 2008Q1

REPORT INFORMATION
  Report Type: 
  Country: None (occurrence: None)
  Receive Date: 20080212
  Receipt Date: 20080131
  Transmission Date: 20080703
  Serious: Yes (Other)
  Sender: FDA-Public Use
  Company Number: CN-PFIZER INC-2007092092

PATIENT
  Age: 34 Year
  Sex: Male

DRUGS (4)
  1. ZYVOX [Suspect]
     Indication: ENTEROCOCCAL INFECTION
     Dates: start: 20071018, end: 20071027
  2. SULPERAZON [Concomitant]
  3. DIFLUCAN [Concomitant]
  4. TEICOPLANIN [Concomitant]
     Dates: start: 20071001, end: 20071001

REACTIONS (3)
  - BLOOD BILIRUBIN INCREASED [None]
  - HEPATIC STEATOSIS [None]
  - LIVER TRANSPLANT REJECTION [None]
